FAERS Safety Report 9983264 (Version 2)
Quarter: 2014Q1

REPORT INFORMATION
  Report Type: Spontaneous
  Country: JP (occurrence: JP)
  Receive Date: 20140307
  Receipt Date: 20140313
  Transmission Date: 20141002
  Serious: Yes (Hospitalization)
  Sender: FDA-Public Use
  Company Number: JP-MERCK-1403JPN003203

PATIENT
  Age: 94 Year
  Sex: Female

DRUGS (1)
  1. GLACTIV [Suspect]
     Indication: TYPE 2 DIABETES MELLITUS
     Dosage: UNK
     Route: 048
     Dates: start: 2014, end: 2014

REACTIONS (1)
  - Ileus [Recovering/Resolving]
